FAERS Safety Report 6912235-4 (Version None)
Quarter: 2010Q3

REPORT INFORMATION
  Report Type: 
  Country: None (occurrence: None)
  Receive Date: 20100806
  Receipt Date: 20080128
  Transmission Date: 20110219
  Serious: No
  Sender: FDA-Public Use
  Company Number: US-PFIZER INC-2008009533

PATIENT
  Age: 65 Year
  Sex: Female

DRUGS (4)
  1. DILANTIN [Suspect]
     Indication: EPILEPSY
     Dates: start: 19480101
  2. SULAR [Concomitant]
     Indication: BLOOD PRESSURE
  3. METOPROLOL SUCCINATE [Concomitant]
     Indication: BLOOD PRESSURE
  4. PHENOBARBITAL [Concomitant]
     Indication: CONVULSION

REACTIONS (1)
  - HYPERTENSION [None]
